FAERS Safety Report 20064603 (Version 2)
Quarter: 2021Q4

REPORT INFORMATION
  Report Type: Spontaneous
  Country: US (occurrence: US)
  Receive Date: 20211112
  Receipt Date: 20211125
  Transmission Date: 20220303
  Serious: Yes (Death, Hospitalization, Other)
  Sender: FDA-Public Use
  Company Number: US-ALLERGAN-2138420US

PATIENT
  Sex: Male

DRUGS (8)
  1. QULIPTA [Suspect]
     Active Substance: ATOGEPANT
     Indication: Migraine with aura
     Dosage: THE LOWEST DOSE / ONCE
     Dates: start: 20211024, end: 20211024
  2. QULIPTA [Suspect]
     Active Substance: ATOGEPANT
     Indication: Migraine
  3. VERAPAMIL HYDROCHLORIDE [Concomitant]
     Active Substance: VERAPAMIL HYDROCHLORIDE
     Dosage: 1/2 AT NIGHT
  4. PLAVIX [Concomitant]
     Active Substance: CLOPIDOGREL BISULFATE
  5. ASPIRIN [Concomitant]
     Active Substance: ASPIRIN
  6. METOPROLOL SUCCINATE [Concomitant]
     Active Substance: METOPROLOL SUCCINATE
     Dosage: UNK, QHS
  7. PROBIOTICS NOS [Concomitant]
     Active Substance: PROBIOTICS NOS
  8. UNSPECIFIED INGREDIENT [Concomitant]
     Active Substance: UNSPECIFIED INGREDIENT
     Indication: Back pain
     Dosage: UNK, PRN

REACTIONS (5)
  - Death [Fatal]
  - Vomiting [Unknown]
  - Abdominal distension [Unknown]
  - Ulcer haemorrhage [Unknown]
  - Oropharyngeal discomfort [Unknown]

NARRATIVE: CASE EVENT DATE: 20211025
